FAERS Safety Report 18587863 (Version 1)
Quarter: 2020Q4

REPORT INFORMATION
  Report Type: Spontaneous
  Country: FR (occurrence: FR)
  Receive Date: 20201207
  Receipt Date: 20201207
  Transmission Date: 20210114
  Serious: Yes (Other)
  Sender: FDA-Public Use
  Company Number: FR-MYLANLABS-2020M1039735

PATIENT
  Age: 56 Year
  Sex: Male
  Weight: 60 kg

DRUGS (2)
  1. CLARITHROMYCIN. [Suspect]
     Active Substance: CLARITHROMYCIN
     Indication: SINUSITIS
     Dosage: 1000 MILLIGRAM, QD
     Route: 048
     Dates: start: 20200210, end: 20200211
  2. NASACORT [Suspect]
     Active Substance: TRIAMCINOLONE ACETONIDE
     Indication: SINUSITIS
     Dosage: 1 DOSAGE FORM, QD
     Route: 045
     Dates: end: 20200211

REACTIONS (4)
  - Face oedema [Recovered/Resolved]
  - Urticaria [Recovered/Resolved]
  - Pharyngeal paraesthesia [Recovered/Resolved]
  - Dizziness [Recovered/Resolved]

NARRATIVE: CASE EVENT DATE: 20200211
